FAERS Safety Report 16454642 (Version 1)
Quarter: 2019Q2

REPORT INFORMATION
  Report Type: Spontaneous
  Country: US (occurrence: US)
  Receive Date: 20190619
  Receipt Date: 20190619
  Transmission Date: 20190711
  Serious: No
  Sender: FDA-Public Use
  Company Number: US-ROCHE-2300360

PATIENT
  Sex: Female
  Weight: 74.91 kg

DRUGS (1)
  1. ACTEMRA [Suspect]
     Active Substance: TOCILIZUMAB
     Indication: TEMPORAL ARTERITIS
     Route: 058
     Dates: start: 201810

REACTIONS (5)
  - Injection site erythema [Unknown]
  - Weight increased [Unknown]
  - Injection site mass [Unknown]
  - Pruritus [Recovered/Resolved]
  - Pruritus [Unknown]
